FAERS Safety Report 4331367-0 (Version None)
Quarter: 2004Q1

REPORT INFORMATION
  Report Type: 
  Country: None (occurrence: None)
  Receive Date: 20040331
  Receipt Date: 20040318
  Transmission Date: 20041129
  Serious: Yes (Death)
  Sender: FDA-Public Use
  Company Number: 2004019672

PATIENT
  Age: 50 Year
  Sex: Male

DRUGS (2)
  1. LOPID [Suspect]
     Indication: BLOOD CHOLESTEROL INCREASED
  2. PRAVASTATIN [Suspect]
     Indication: ILL-DEFINED DISORDER

REACTIONS (4)
  - ABDOMINAL PAIN [None]
  - ARTHRALGIA [None]
  - BLOOD CHOLESTEROL ABNORMAL [None]
  - DRUG EFFECT DECREASED [None]
